FAERS Safety Report 8409206-8 (Version None)
Quarter: 2012Q2

REPORT INFORMATION
  Report Type: 
  Country: None (occurrence: None)
  Receive Date: 20120604
  Receipt Date: 20120530
  Transmission Date: 20120825
  Serious: Yes (Other)
  Sender: FDA-Public Use
  Company Number: US-BAYER-2011-076174

PATIENT
  Age: 49 Year
  Sex: Female

DRUGS (3)
  1. YASMIN [Suspect]
     Dates: start: 20090901, end: 20100401
  2. MULTI-VITAMIN [Concomitant]
     Dosage: UNK
     Route: 048
     Dates: start: 20050608
  3. ACIPHEX [Concomitant]
     Dosage: UNK
     Route: 048
     Dates: start: 20061012

REACTIONS (5)
  - ANXIETY [None]
  - PAIN [None]
  - INJURY [None]
  - DEEP VEIN THROMBOSIS [None]
  - ANHEDONIA [None]
